FAERS Safety Report 6274378-0 (Version None)
Quarter: 2009Q3

REPORT INFORMATION
  Report Type: 
  Country: None (occurrence: None)
  Receive Date: 20090720
  Receipt Date: 20090708
  Transmission Date: 20100115
  Serious: Yes (Hospitalization)
  Sender: FDA-Public Use
  Company Number: CH-SANOFI-SYNTHELABO-A01200907248

PATIENT
  Age: 73 Year
  Sex: Male

DRUGS (6)
  1. TENORMIN [Suspect]
     Indication: SUICIDE ATTEMPT
     Route: 048
     Dates: start: 20081221, end: 20081221
  2. DEANXIT [Suspect]
     Indication: SUICIDE ATTEMPT
     Route: 048
     Dates: start: 20081221, end: 20081221
  3. REMERON [Suspect]
     Indication: SUICIDE ATTEMPT
     Route: 048
     Dates: start: 20081221, end: 20081221
  4. SEROQUEL [Suspect]
     Indication: SUICIDE ATTEMPT
     Route: 048
     Dates: start: 20081221, end: 20081221
  5. DISTRANEURIN [Suspect]
     Indication: SUICIDE ATTEMPT
     Route: 048
     Dates: start: 20081221, end: 20081221
  6. PLAVIX [Suspect]
     Indication: SUICIDE ATTEMPT
     Route: 048
     Dates: start: 20081221, end: 20081221

REACTIONS (4)
  - BRADYCARDIA [None]
  - INCORRECT DOSE ADMINISTERED [None]
  - MULTIPLE DRUG OVERDOSE INTENTIONAL [None]
  - SOMNOLENCE [None]
